FAERS Safety Report 24643922 (Version 4)
Quarter: 2025Q1

REPORT INFORMATION
  Report Type: Spontaneous
  Country: JP (occurrence: JP)
  Receive Date: 20241120
  Receipt Date: 20250314
  Transmission Date: 20250409
  Serious: Yes (Death, Hospitalization)
  Sender: EISAI
  Company Number: JP-Eisai-202409180_LEN_P_1

PATIENT
  Age: 86 Year
  Sex: Female

DRUGS (2)
  1. LENVATINIB [Suspect]
     Active Substance: LENVATINIB
     Indication: Anaplastic thyroid cancer
     Dates: start: 20240305
  2. LENVATINIB [Suspect]
     Active Substance: LENVATINIB
     Dates: start: 2024

REACTIONS (3)
  - Pneumonia aspiration [Fatal]
  - Cholecystitis [Unknown]
  - Pneumonia [Recovering/Resolving]

NARRATIVE: CASE EVENT DATE: 20240101
